FAERS Safety Report 6222545-4 (Version None)
Quarter: 2009Q2

REPORT INFORMATION
  Report Type: 
  Country: None (occurrence: None)
  Receive Date: 20090609
  Receipt Date: 20090609
  Transmission Date: 20091009
  Serious: No
  Sender: FDA-Public Use
  Company Number: None

PATIENT
  Sex: Female
  Weight: 58.0604 kg

DRUGS (9)
  1. BUDEPRION XL 300 MG TEVA [Suspect]
     Indication: ATTENTION DEFICIT/HYPERACTIVITY DISORDER
     Dosage: 300 MG DAILY PO
     Route: 048
     Dates: start: 20081001, end: 20090430
  2. BUDEPRION XL 300 MG TEVA [Suspect]
     Indication: BIPOLAR DISORDER
     Dosage: 300 MG DAILY PO
     Route: 048
     Dates: start: 20081001, end: 20090430
  3. GENERIC LAMACTIL [Concomitant]
  4. LASIX [Concomitant]
  5. LANTIS [Concomitant]
  6. WARAFIN [Concomitant]
  7. AMBIEN [Concomitant]
  8. THYROXIEN [Concomitant]
  9. PRILOSEC [Concomitant]

REACTIONS (7)
  - AFFECTIVE DISORDER [None]
  - DECREASED INTEREST [None]
  - DEPRESSION [None]
  - DRUG INEFFECTIVE [None]
  - LOSS OF EMPLOYMENT [None]
  - PRODUCT SUBSTITUTION ISSUE [None]
  - WEIGHT DECREASED [None]
